FAERS Safety Report 24232457 (Version 1)
Quarter: 2024Q3

REPORT INFORMATION
  Report Type: Report from Study
  Country: CA (occurrence: CA)
  Receive Date: 20240821
  Receipt Date: 20240821
  Transmission Date: 20241017
  Serious: Yes (Death, Other)
  Sender: MYLAN
  Company Number: CA-MYLANLABS-2024M1051752

PATIENT
  Age: 66 Year
  Sex: Male

DRUGS (1)
  1. CLOZAPINE [Suspect]
     Active Substance: CLOZAPINE
     Indication: Product used for unknown indication
     Dosage: UNK (REPORTED AS PATIENT?S MOST RECENT START DATE ON CLOZAPINE ON OR ABOUT: 10-DEC-2019)
     Route: 065
     Dates: start: 201912

REACTIONS (2)
  - Death [Fatal]
  - Middle cerebral artery stroke [Unknown]

NARRATIVE: CASE EVENT DATE: 20240508
